FAERS Safety Report 22214455 (Version 1)
Quarter: 2023Q2

REPORT INFORMATION
  Report Type: Spontaneous
  Country: US (occurrence: US)
  Receive Date: 20230414
  Receipt Date: 20230414
  Transmission Date: 20230722
  Serious: No
  Sender: FDA-Public Use
  Company Number: US-SA-SAC20230410000618

PATIENT

DRUGS (1)
  1. LARONIDASE [Suspect]
     Active Substance: LARONIDASE
     Indication: Mucopolysaccharidosis I
     Dosage: 11.6 UNK, QW
     Route: 042
     Dates: start: 20121217

REACTIONS (4)
  - Gait inability [Unknown]
  - Eye disorder [Unknown]
  - Disease progression [Unknown]
  - Catheter placement [Unknown]

NARRATIVE: CASE EVENT DATE: 20200101
